FAERS Safety Report 7310187-9 (Version None)
Quarter: 2011Q1

REPORT INFORMATION
  Report Type: 
  Country: None (occurrence: None)
  Receive Date: 20110224
  Receipt Date: 20110216
  Transmission Date: 20110831
  Serious: Yes (Other)
  Sender: FDA-Public Use
  Company Number: JP-ASTELLAS-2011JP001287

PATIENT
  Age: 61 Year
  Sex: Male

DRUGS (6)
  1. METHOTREXATE [Concomitant]
     Indication: PROPHYLAXIS AGAINST GRAFT VERSUS HOST DISEASE
     Route: 065
  2. GANCICLOVIR [Concomitant]
     Indication: CYTOMEGALOVIRUS VIRAEMIA
     Dosage: UNK
     Route: 065
  3. FUNGUARD [Suspect]
     Indication: CANDIDA TEST POSITIVE
     Dosage: 150 MG, UNKNOWN/D
     Route: 065
  4. FUNGUARD [Suspect]
     Indication: FEBRILE NEUTROPENIA
     Dosage: 150 MG, UNKNOWN/D
     Route: 065
  5. FUNGUARD [Suspect]
     Dosage: 150 MG, UNKNOWN/D
     Route: 065
  6. ANTIBIOTICS [Concomitant]
     Indication: FEBRILE NEUTROPENIA
     Route: 065

REACTIONS (2)
  - DRUG INEFFECTIVE [None]
  - CANDIDA TEST POSITIVE [None]
